FAERS Safety Report 8505372-4 (Version None)
Quarter: 2012Q3

REPORT INFORMATION
  Report Type: 
  Country: None (occurrence: None)
  Receive Date: 20120712
  Receipt Date: 20120629
  Transmission Date: 20120928
  Serious: Yes (Other)
  Sender: FDA-Public Use
  Company Number: US-ELI_LILLY_AND_COMPANY-US201104006136

PATIENT
  Sex: Female
  Weight: 72.58 kg

DRUGS (2)
  1. FORTEO [Suspect]
     Indication: OSTEOPOROSIS
     Dosage: 20 MCG, QD
     Dates: start: 20120515
  2. FORTEO [Suspect]
     Dosage: 20 MCG, QD

REACTIONS (12)
  - APPLICATION SITE ODOUR [None]
  - VOMITING [None]
  - BILIARY DILATATION [None]
  - PNEUMONIA ASPIRATION [None]
  - HIATUS HERNIA [None]
  - DUODENITIS [None]
  - BILE DUCT OBSTRUCTION [None]
  - BILE DUCT STENOSIS [None]
  - SEBORRHOEA [None]
  - ASPIRATION [None]
  - THIRST [None]
  - MALAISE [None]
